FAERS Safety Report 18563431 (Version 2)
Quarter: 2021Q1

REPORT INFORMATION
  Report Type: Spontaneous
  Country: JP (occurrence: JP)
  Receive Date: 20201201
  Receipt Date: 20210121
  Transmission Date: 20210419
  Serious: Yes (Hospitalization)
  Sender: FDA-Public Use
  Company Number: JP-SA-2020SA342293

PATIENT
  Age: 60 Year
  Sex: Male

DRUGS (3)
  1. CAPECITABINE. [Concomitant]
     Active Substance: CAPECITABINE
     Indication: RECTAL CANCER
     Dosage: UNK
  2. BEVACIZUMAB. [Concomitant]
     Active Substance: BEVACIZUMAB
     Indication: RECTAL CANCER
     Dosage: UNK
  3. ELPLAT [Suspect]
     Active Substance: OXALIPLATIN
     Indication: RECTAL CANCER
     Dosage: ONCE IN 3WEEKS
     Route: 041

REACTIONS (2)
  - Bleeding varicose vein [Recovered/Resolved]
  - Drug hypersensitivity [Unknown]
